FAERS Safety Report 7262552-6 (Version None)
Quarter: 2011Q1

REPORT INFORMATION
  Report Type: 
  Country: None (occurrence: None)
  Receive Date: 20110130
  Receipt Date: 20101209
  Transmission Date: 20110831
  Serious: No
  Sender: FDA-Public Use
  Company Number: US-ABBOTT-10P-163-0690756-00

PATIENT
  Sex: Female
  Weight: 122.58 kg

DRUGS (8)
  1. FLEXERIL [Concomitant]
     Indication: PAIN
  2. ALLEGRA [Concomitant]
     Indication: HYPERSENSITIVITY
     Dates: end: 20101101
  3. WELCHOL [Concomitant]
     Indication: CHOLECYSTECTOMY
  4. AMITRIPTYLINE HCL [Concomitant]
     Indication: INFLAMMATORY BOWEL DISEASE
     Dates: end: 20101101
  5. FLEXERIL [Concomitant]
     Indication: INFLAMMATORY BOWEL DISEASE
  6. PROTONIX [Concomitant]
     Indication: GASTROOESOPHAGEAL REFLUX DISEASE
     Dates: end: 20101101
  7. HUMIRA [Suspect]
     Indication: RHEUMATOID ARTHRITIS
     Dates: start: 20101001
  8. AMITRIPTYLINE HCL [Concomitant]
     Indication: INSOMNIA

REACTIONS (2)
  - BACK PAIN [None]
  - MUSCLE STRAIN [None]
